FAERS Safety Report 21679843 (Version 1)
Quarter: 2022Q4

REPORT INFORMATION
  Report Type: Spontaneous
  Country: US (occurrence: US)
  Receive Date: 20221205
  Receipt Date: 20221205
  Transmission Date: 20230113
  Serious: No
  Sender: FDA-Public Use
  Company Number: US-BIOVITRUM-2022US14161

PATIENT
  Sex: Female
  Weight: 8.172 kg

DRUGS (7)
  1. SYNAGIS [Suspect]
     Active Substance: PALIVIZUMAB
     Indication: Chronic respiratory disease
     Dosage: 100 MG SDV/INJ PF 1 ML 1^S, 50 MG SDV/INJ PF 0.5 ML
     Dates: start: 20221108
  2. KATERZIA [Concomitant]
     Active Substance: AMLODIPINE BENZOATE
     Dosage: 1 MG/ML ORAL SUSPENSION
  3. PEPCID [Concomitant]
     Active Substance: FAMOTIDINE
     Dosage: TABLET
  4. Multivitamin-iron-fluoride [Concomitant]
  5. SYNAGIS [Suspect]
     Active Substance: PALIVIZUMAB
     Indication: Premature baby
  6. SYNAGIS [Suspect]
     Active Substance: PALIVIZUMAB
     Indication: Gastrostomy
  7. OXYGEN [Concomitant]
     Active Substance: OXYGEN

REACTIONS (5)
  - Nasopharyngitis [Unknown]
  - Dyspnoea [Unknown]
  - Nasal congestion [Unknown]
  - Sneezing [Unknown]
  - Cough [Unknown]
